FAERS Safety Report 5594205-4 (Version None)
Quarter: 2008Q1

REPORT INFORMATION
  Report Type: 
  Country: None (occurrence: None)
  Receive Date: 20080115
  Receipt Date: 20080107
  Transmission Date: 20080703
  Serious: Yes (Hospitalization)
  Sender: FDA-Public Use
  Company Number: E2020-02089-SPO-SE

PATIENT
  Age: 77 Year
  Sex: Male

DRUGS (9)
  1. ARICEPT [Suspect]
     Dosage: 5 MG, 1 IN 1 D, ORAL
     Route: 048
     Dates: start: 20070614, end: 20070717
  2. RISPERIDON           (RISPERIDONE) [Suspect]
     Dosage: 0.5, ORAL : 0.5 MG, ORAL
     Route: 048
     Dates: end: 20070717
  3. RISPERIDON           (RISPERIDONE) [Suspect]
     Dosage: 0.5, ORAL : 0.5 MG, ORAL
     Route: 048
     Dates: start: 20070101
  4. OMEPRAZOL            (OMPEPRAZOLE) [Concomitant]
  5. MIRTAZAPINE [Concomitant]
  6. LEVOTHYROXINE SODIUM [Concomitant]
  7. WARFARIN SODIUM [Concomitant]
  8. KLOMETIAZOL [Concomitant]
  9. GLYCEROL TRINITRATE           (GLYCERYL TRINITRATE) [Concomitant]

REACTIONS (4)
  - CATATONIA [None]
  - FALL [None]
  - LOSS OF CONSCIOUSNESS [None]
  - PARKINSONISM [None]
